FAERS Safety Report 7593266-0 (Version None)
Quarter: 2011Q3

REPORT INFORMATION
  Report Type: 
  Country: None (occurrence: None)
  Receive Date: 20110706
  Receipt Date: 20110704
  Transmission Date: 20111222
  Serious: Yes (Death, Life-Threatening)
  Sender: FDA-Public Use
  Company Number: US-ROXANE LABORATORIES, INC.-2011-RO-00936RO

PATIENT
  Age: 43 Year
  Sex: Female
  Weight: 79 kg

DRUGS (6)
  1. ALPRAZOLAM [Suspect]
     Dosage: 6 MG
  2. ZIPRASIDONE HYDROCHLORIDE [Suspect]
  3. ALPRAZOLAM [Suspect]
  4. ZOLPIDEM [Suspect]
     Dosage: 60 MG
  5. ZOLPIDEM [Suspect]
     Indication: INSOMNIA
  6. CITALOPRAM HYDROBROMIDE [Suspect]

REACTIONS (2)
  - OVERDOSE [None]
  - WITHDRAWAL SYNDROME [None]
